FAERS Safety Report 9153189 (Version 4)
Quarter: 2013Q2

REPORT INFORMATION
  Report Type: Spontaneous
  Country: US (occurrence: US)
  Receive Date: 20130311
  Receipt Date: 20130426
  Transmission Date: 20140414
  Serious: Yes (Death)
  Sender: FDA-Public Use
  Company Number: US-BIOGENIDEC-2013BI021568

PATIENT
  Age: 54 Year
  Sex: Male

DRUGS (13)
  1. TYSABRI [Suspect]
     Indication: MULTIPLE SCLEROSIS
     Route: 042
     Dates: start: 20121226, end: 20130123
  2. ACETAMINOPHEN [Concomitant]
  3. BACLOFEN [Concomitant]
  4. COLACE [Concomitant]
  5. CYPROHEPTADINE [Concomitant]
  6. FLOMAX [Concomitant]
  7. HCTZ [Concomitant]
  8. HYDROCODONE/APAP [Concomitant]
  9. KLOR-CON [Concomitant]
  10. NAPROXEN [Concomitant]
  11. PLAVIX [Concomitant]
  12. PROZAC [Concomitant]
  13. TOPAMAX [Concomitant]

REACTIONS (2)
  - Anaemia [Unknown]
  - Multiple sclerosis [Fatal]
